FAERS Safety Report 9852287 (Version 1)
Quarter: 2013Q4

REPORT INFORMATION
  Report Type: Spontaneous
  Country: US (occurrence: None)
  Receive Date: 20131127
  Receipt Date: 20131127
  Transmission Date: 20140711
  Serious: Yes (Other)
  Sender: FDA-Public Use
  Company Number: 224503LEO

PATIENT
  Age: 62 Year
  Sex: 0

DRUGS (1)
  1. PICATO [Suspect]
     Indication: ACTINIC KERATOSIS
     Dosage: (1 IN 1 D), DERMAL
     Dates: start: 20131029

REACTIONS (2)
  - Application site pustules [None]
  - Skin disorder [None]
